FAERS Safety Report 8548520-2 (Version None)
Quarter: 2012Q3

REPORT INFORMATION
  Report Type: 
  Country: None (occurrence: None)
  Receive Date: 20120730
  Receipt Date: 20120716
  Transmission Date: 20120928
  Serious: Yes (Hospitalization)
  Sender: FDA-Public Use
  Company Number: FR-VERTEX PHARMACEUTICALS INC.-AE-2011-000335

PATIENT
  Sex: Female
  Weight: 62 kg

DRUGS (13)
  1. NEORECORMON [Concomitant]
     Indication: ANAEMIA
     Dates: start: 20110712
  2. VX-950 [Suspect]
     Indication: HEPATITIS C
     Route: 048
     Dates: start: 20110515, end: 20110707
  3. PEGASYS [Concomitant]
     Indication: HEPATITIS C
     Dates: start: 20110515, end: 20120401
  4. LASIX [Concomitant]
     Indication: HYPERTENSION
     Dates: start: 19950101
  5. ALDACTONE [Concomitant]
     Indication: HYPERTENSION
     Dates: start: 19950101
  6. LEVOTHYROXINE SODIUM [Concomitant]
     Indication: HYPOTHYROIDISM
     Dates: start: 19870101
  7. ACETAMINOPHEN [Concomitant]
     Indication: INFLUENZA
  8. ALUMINUM HYDROXIDE AND MAGNESIUM TRISILICATE [Concomitant]
     Indication: DIARRHOEA
  9. COPEGUS [Concomitant]
     Indication: HEPATITIS C
     Dates: start: 20110515, end: 20120407
  10. DESLORATADINE [Concomitant]
     Indication: RHINITIS ALLERGIC
  11. CLIPTOL [Concomitant]
     Indication: NECK PAIN
  12. MOTILIUM [Concomitant]
     Indication: VOMITING
     Dates: start: 20110712
  13. PIASCLEDINE [Concomitant]

REACTIONS (8)
  - PYREXIA [None]
  - DIARRHOEA [None]
  - ILEITIS [None]
  - NAUSEA [None]
  - ABDOMINAL PAIN [None]
  - DEHYDRATION [None]
  - VOMITING [None]
  - CROHN'S DISEASE [None]
